FAERS Safety Report 24912303 (Version 2)
Quarter: 2025Q4

REPORT INFORMATION
  Report Type: Report from Study
  Country: EU (occurrence: EU)
  Receive Date: 20250131
  Receipt Date: 20251007
  Transmission Date: 20260118
  Serious: Yes (Hospitalization)
  Sender: MYLAN
  Company Number: EU-SA-2024SA361405

PATIENT
  Age: 78 Year
  Sex: Female
  Weight: 85 kg

DRUGS (85)
  1. DEXAMETHASONE [Suspect]
     Active Substance: DEXAMETHASONE
     Indication: Multiple sclerosis
     Dosage: 20 MILLIGRAM, QW
     Dates: start: 20221109, end: 20221109
  2. DEXAMETHASONE [Suspect]
     Active Substance: DEXAMETHASONE
     Indication: Plasma cell myeloma refractory
     Dosage: 20 MILLIGRAM, QW
     Dates: start: 20221115, end: 20221115
  3. DEXAMETHASONE [Suspect]
     Active Substance: DEXAMETHASONE
     Dosage: 20 MILLIGRAM, QW
     Dates: start: 20221121, end: 20221121
  4. DEXAMETHASONE [Suspect]
     Active Substance: DEXAMETHASONE
     Dosage: 20 MILLIGRAM, QW
     Dates: start: 20221129, end: 20221129
  5. DEXAMETHASONE [Suspect]
     Active Substance: DEXAMETHASONE
     Dosage: 10 MILLIGRAM, QW
     Dates: start: 20221206, end: 20221206
  6. DEXAMETHASONE [Suspect]
     Active Substance: DEXAMETHASONE
     Dosage: 10 MILLIGRAM, Q2W (10 MG, QOW)
     Dates: start: 20221219, end: 20221219
  7. DEXAMETHASONE [Suspect]
     Active Substance: DEXAMETHASONE
     Dosage: 10 MILLIGRAM, Q2W (10 MG, QOW)
     Dates: start: 20230102, end: 20230102
  8. DEXAMETHASONE [Suspect]
     Active Substance: DEXAMETHASONE
     Dosage: 10 MILLIGRAM, Q2W (10 MG, QOW)
     Dates: start: 20230116, end: 20230116
  9. DEXAMETHASONE [Suspect]
     Active Substance: DEXAMETHASONE
     Dosage: 10 MILLIGRAM, Q2W (10 MG, QOW)
     Dates: start: 20230130, end: 20230130
  10. DEXAMETHASONE [Suspect]
     Active Substance: DEXAMETHASONE
     Dosage: 10 MILLIGRAM, Q2W (10 MG, QOW)
     Dates: start: 20230213, end: 20230213
  11. DEXAMETHASONE [Suspect]
     Active Substance: DEXAMETHASONE
     Dosage: 10 MILLIGRAM, Q2W (10 MG, QOW)
     Dates: start: 20230227, end: 20230313
  12. DEXAMETHASONE [Suspect]
     Active Substance: DEXAMETHASONE
     Dosage: 10 MILLIGRAM, Q2W (10 MG, QOW)
     Dates: start: 20230327, end: 20230411
  13. DEXAMETHASONE [Suspect]
     Active Substance: DEXAMETHASONE
     Dosage: 10 MILLIGRAM, Q2W (10 MG, QOW)
     Dates: start: 20230424, end: 20230509
  14. DEXAMETHASONE [Suspect]
     Active Substance: DEXAMETHASONE
     Dosage: 10 MILLIGRAM, Q2W (10 MG, QOW)
     Dates: start: 20230522, end: 20230605
  15. DEXAMETHASONE [Suspect]
     Active Substance: DEXAMETHASONE
     Dosage: 10 MILLIGRAM, Q2W (10 MG, QOW)
     Dates: start: 20230619, end: 20230703
  16. DEXAMETHASONE [Suspect]
     Active Substance: DEXAMETHASONE
     Dosage: 10 MILLIGRAM, Q2W (10 MG, QOW)
     Dates: start: 20230717, end: 20230731
  17. DEXAMETHASONE [Suspect]
     Active Substance: DEXAMETHASONE
     Dosage: 10 MILLIGRAM, Q2W (10 MG, QOW)
     Dates: start: 20230717, end: 20230731
  18. DEXAMETHASONE [Suspect]
     Active Substance: DEXAMETHASONE
     Dosage: 10 MILLIGRAM, Q2W (10 MG, QOW)
     Dates: start: 20230814, end: 20230828
  19. DEXAMETHASONE [Suspect]
     Active Substance: DEXAMETHASONE
     Dosage: 10 MILLIGRAM, Q2W (10 MG, QOW)
     Dates: start: 20230911, end: 20230925
  20. DEXAMETHASONE [Suspect]
     Active Substance: DEXAMETHASONE
     Dosage: 10 MILLIGRAM, Q2W (10 MG, QOW)
     Dates: start: 20231009, end: 20231023
  21. DEXAMETHASONE [Suspect]
     Active Substance: DEXAMETHASONE
     Dosage: 10 MILLIGRAM, ONCE (10 MG, 1X)
     Dates: start: 20231106, end: 20231106
  22. POMALIDOMIDE [Suspect]
     Active Substance: POMALIDOMIDE
     Indication: Plasma cell myeloma refractory
     Dosage: 4 MILLIGRAM, QD
     Dates: start: 20221109, end: 20221122
  23. POMALIDOMIDE [Suspect]
     Active Substance: POMALIDOMIDE
     Dosage: 4 MILLIGRAM, QD
     Dates: start: 20221206, end: 20221226
  24. POMALIDOMIDE [Suspect]
     Active Substance: POMALIDOMIDE
     Dosage: 4 MILLIGRAM, QD
     Dates: start: 20230102, end: 20230130
  25. POMALIDOMIDE [Suspect]
     Active Substance: POMALIDOMIDE
     Dosage: 4 MILLIGRAM, QD
     Dates: start: 20230206, end: 20230219
  26. POMALIDOMIDE [Suspect]
     Active Substance: POMALIDOMIDE
     Dosage: 4 MILLIGRAM, QD
     Dates: start: 20230227, end: 20230319
  27. POMALIDOMIDE [Suspect]
     Active Substance: POMALIDOMIDE
     Dosage: 4 MILLIGRAM, QD
     Dates: start: 20230327, end: 20230416
  28. POMALIDOMIDE [Suspect]
     Active Substance: POMALIDOMIDE
     Dosage: 4 MILLIGRAM, Q2W (4 MG, QOW)
     Dates: start: 20230424, end: 20230514
  29. POMALIDOMIDE [Suspect]
     Active Substance: POMALIDOMIDE
     Dosage: 4 MILLIGRAM, QD
     Dates: start: 20230522, end: 20230611
  30. POMALIDOMIDE [Suspect]
     Active Substance: POMALIDOMIDE
     Dosage: 4 MILLIGRAM, QD
     Dates: start: 20230619, end: 20230709
  31. POMALIDOMIDE [Suspect]
     Active Substance: POMALIDOMIDE
     Dosage: 3 MILLIGRAM, QD
     Dates: start: 20230717, end: 20230806
  32. POMALIDOMIDE [Suspect]
     Active Substance: POMALIDOMIDE
     Dosage: 4 MILLIGRAM, QD
     Dates: start: 20230814, end: 20240903
  33. POMALIDOMIDE [Suspect]
     Active Substance: POMALIDOMIDE
     Dosage: 3 MILLIGRAM, QD
     Dates: start: 20230911, end: 20230917
  34. POMALIDOMIDE [Suspect]
     Active Substance: POMALIDOMIDE
     Dosage: 3 MILLIGRAM, QD
     Dates: start: 20230925, end: 20231001
  35. POMALIDOMIDE [Suspect]
     Active Substance: POMALIDOMIDE
     Dosage: 3 MILLIGRAM, QD
     Dates: start: 20231009, end: 20231029
  36. POMALIDOMIDE [Suspect]
     Active Substance: POMALIDOMIDE
     Dosage: 3 MILLIGRAM, QD
     Dates: start: 20231106, end: 20231119
  37. POMALIDOMIDE [Suspect]
     Active Substance: POMALIDOMIDE
     Dosage: 3 MILLIGRAM, QD
     Dates: start: 20240109, end: 20240129
  38. POMALIDOMIDE [Suspect]
     Active Substance: POMALIDOMIDE
     Dosage: 3 MILLIGRAM, QD
     Dates: start: 20240206, end: 20240226
  39. POMALIDOMIDE [Suspect]
     Active Substance: POMALIDOMIDE
     Dosage: 3 MILLIGRAM, QD
     Dates: start: 20240305, end: 20240325
  40. POMALIDOMIDE [Suspect]
     Active Substance: POMALIDOMIDE
     Dosage: 3 MILLIGRAM, QD
     Dates: start: 20240405, end: 20240425
  41. POMALIDOMIDE [Suspect]
     Active Substance: POMALIDOMIDE
     Dosage: 3 MILLIGRAM, QD
     Dates: start: 20240502, end: 20240522
  42. POMALIDOMIDE [Suspect]
     Active Substance: POMALIDOMIDE
     Dosage: 3 MILLIGRAM, QD
     Dates: start: 20240530, end: 20240619
  43. POMALIDOMIDE [Suspect]
     Active Substance: POMALIDOMIDE
     Dosage: 3 MILLIGRAM, QD
     Dates: start: 20240627, end: 20240717
  44. POMALIDOMIDE [Suspect]
     Active Substance: POMALIDOMIDE
     Dosage: 3 MILLIGRAM, QD
     Dates: start: 20240725, end: 20240814
  45. ISATUXIMAB [Suspect]
     Active Substance: ISATUXIMAB
     Indication: Multiple sclerosis
     Dosage: 800 MILLIGRAM, QW
     Dates: start: 20221109, end: 20221109
  46. ISATUXIMAB [Suspect]
     Active Substance: ISATUXIMAB
     Indication: Plasma cell myeloma refractory
     Dosage: 800 MILLIGRAM, QW
     Dates: start: 20221115, end: 20221115
  47. ISATUXIMAB [Suspect]
     Active Substance: ISATUXIMAB
     Dosage: 800 MILLIGRAM, QW
     Dates: start: 20221121, end: 20221121
  48. ISATUXIMAB [Suspect]
     Active Substance: ISATUXIMAB
     Dosage: 800 MILLIGRAM, QW
     Dates: start: 20221129, end: 20221129
  49. ISATUXIMAB [Suspect]
     Active Substance: ISATUXIMAB
     Dosage: 800 MILLIGRAM, QW
     Dates: start: 20221206, end: 20221206
  50. ISATUXIMAB [Suspect]
     Active Substance: ISATUXIMAB
     Dosage: 800 MILLIGRAM, QW
     Dates: start: 20221219, end: 20221219
  51. ISATUXIMAB [Suspect]
     Active Substance: ISATUXIMAB
     Dosage: 800 MILLIGRAM, QW
     Dates: start: 20230102, end: 20230102
  52. ISATUXIMAB [Suspect]
     Active Substance: ISATUXIMAB
     Dosage: 800 MILLIGRAM, QW
     Dates: start: 20230116, end: 20230116
  53. ISATUXIMAB [Suspect]
     Active Substance: ISATUXIMAB
     Dosage: 800 MILLIGRAM, Q2W (830 MG, QOW)
     Dates: start: 20230130, end: 20230130
  54. ISATUXIMAB [Suspect]
     Active Substance: ISATUXIMAB
     Dosage: 800 MILLIGRAM, Q2W (830 MG, QOW)
     Dates: start: 20230213, end: 20230213
  55. ISATUXIMAB [Suspect]
     Active Substance: ISATUXIMAB
     Dosage: 800 MILLIGRAM, Q2W (830 MG, QOW)
     Dates: start: 20230227, end: 20230313
  56. ISATUXIMAB [Suspect]
     Active Substance: ISATUXIMAB
     Dosage: 830 MILLIGRAM, QW
     Dates: start: 20230327, end: 20230411
  57. ISATUXIMAB [Suspect]
     Active Substance: ISATUXIMAB
     Dosage: 800 MILLIGRAM, Q2W (830 MG, QOW)
     Dates: start: 20230424, end: 20230509
  58. ISATUXIMAB [Suspect]
     Active Substance: ISATUXIMAB
     Dosage: 800 MILLIGRAM, Q2W (830 MG, QOW)
     Dates: start: 20230522, end: 20230605
  59. ISATUXIMAB [Suspect]
     Active Substance: ISATUXIMAB
     Dosage: 800 MILLIGRAM, Q2W (830 MG, QOW)
     Dates: start: 20230619, end: 20230703
  60. ISATUXIMAB [Suspect]
     Active Substance: ISATUXIMAB
     Dosage: 800 MILLIGRAM, Q2W (830 MG, QOW)
     Dates: start: 20230814, end: 20230828
  61. ISATUXIMAB [Suspect]
     Active Substance: ISATUXIMAB
     Dosage: 800 MILLIGRAM, Q2W (830 MG, QOW)
     Dates: start: 20230911, end: 20230925
  62. ISATUXIMAB [Suspect]
     Active Substance: ISATUXIMAB
     Dosage: 800 MILLIGRAM, Q2W (830 MG, QOW)
     Dates: start: 20231009, end: 20231023
  63. ISATUXIMAB [Suspect]
     Active Substance: ISATUXIMAB
     Dosage: 870 MILLIGRAM, ONCE
     Dates: start: 20231106, end: 20231106
  64. ISATUXIMAB [Suspect]
     Active Substance: ISATUXIMAB
     Dosage: 870 MILLIGRAM, Q2W (870 MG, QOW)
     Dates: start: 20231127, end: 20231127
  65. ISATUXIMAB [Suspect]
     Active Substance: ISATUXIMAB
     Dosage: 870 MILLIGRAM, ONCE
     Dates: start: 20231211, end: 20231211
  66. ISATUXIMAB [Suspect]
     Active Substance: ISATUXIMAB
     Dosage: 800 MILLIGRAM, Q2W (800 MG, QOW)
     Dates: start: 20240206, end: 20240220
  67. ISATUXIMAB [Suspect]
     Active Substance: ISATUXIMAB
     Dosage: 870 MILLIGRAM, Q2W (870 MG, QOW)
     Dates: start: 20240305, end: 20240318
  68. ISATUXIMAB [Suspect]
     Active Substance: ISATUXIMAB
     Dosage: 870 MILLIGRAM, Q2W (870 MG, QOW)
     Dates: start: 20240405, end: 20240419
  69. ISATUXIMAB [Suspect]
     Active Substance: ISATUXIMAB
     Dosage: 870 MILLIGRAM, Q2W (870 MG, QOW)
     Dates: start: 20240502, end: 20240516
  70. ISATUXIMAB [Suspect]
     Active Substance: ISATUXIMAB
     Dosage: 870 MILLIGRAM, Q2W (870 MG, QOW)
     Dates: start: 20240530, end: 20240613
  71. ISATUXIMAB [Suspect]
     Active Substance: ISATUXIMAB
     Dosage: 870 MILLIGRAM, Q2W (870 MG, QOW)
     Dates: start: 20240627, end: 20240711
  72. ISATUXIMAB [Suspect]
     Active Substance: ISATUXIMAB
     Dosage: 870 MILLIGRAM, TOTAL, 1X
     Dates: start: 20240725, end: 20240725
  73. ZOPICLONE [Concomitant]
     Active Substance: ZOPICLONE
     Indication: Anxiety
     Dosage: UNK
  74. PRAZEPAM [Concomitant]
     Active Substance: PRAZEPAM
     Indication: Anxiety
     Dosage: UNK
  75. Ataraxone [Concomitant]
     Indication: Anxiety
     Dosage: UNK
  76. ELIQUIS [Concomitant]
     Active Substance: APIXABAN
     Indication: Prophylaxis
     Dosage: UNK
  77. POTASSIUM CHLORIDE [Concomitant]
     Active Substance: POTASSIUM CHLORIDE
     Indication: Prophylaxis
     Dosage: UNK
  78. VALACYCLOVIR HYDROCHLORIDE [Concomitant]
     Active Substance: VALACYCLOVIR HYDROCHLORIDE
     Indication: Prophylaxis
     Dosage: UNK
  79. ACETAMINOPHEN [Concomitant]
     Active Substance: ACETAMINOPHEN
     Indication: Prophylaxis
     Dosage: UNK
  80. POLARAMINE [Concomitant]
     Active Substance: DEXCHLORPHENIRAMINE MALEATE
     Indication: Prophylaxis
     Dosage: UNK
  81. RANITIDINE [Concomitant]
     Active Substance: RANITIDINE
     Indication: Prophylaxis
     Dosage: UNK
  82. CYANOCOBALAMIN [Concomitant]
     Active Substance: CYANOCOBALAMIN
     Dosage: UNK
  83. AMOXICILLIN [Concomitant]
     Active Substance: AMOXICILLIN
     Indication: Infection prophylaxis
     Dosage: UNK
  84. FOSFOMYCIN TROMETHAMINE [Concomitant]
     Active Substance: FOSFOMYCIN TROMETHAMINE
     Dosage: UNK
     Dates: start: 20240808, end: 20240812
  85. Laxatif [Concomitant]
     Indication: Constipation prophylaxis
     Dosage: UNK

REACTIONS (3)
  - Postoperative wound infection [Recovered/Resolved]
  - Humerus fracture [Recovered/Resolved]
  - Femur fracture [Recovered/Resolved]

NARRATIVE: CASE EVENT DATE: 20240822
